FAERS Safety Report 5689199-7 (Version None)
Quarter: 2008Q1

REPORT INFORMATION
  Report Type: 
  Country: None (occurrence: None)
  Receive Date: 20080331
  Receipt Date: 20080324
  Transmission Date: 20080703
  Serious: Yes (Hospitalization)
  Sender: FDA-Public Use
  Company Number: US-KINGPHARMUSA00001-K200800356

PATIENT

DRUGS (1)
  1. FLORINEF [Suspect]
     Indication: ADDISON'S DISEASE
     Dosage: UNK, QD
     Route: 048

REACTIONS (3)
  - CIRCULATORY COLLAPSE [None]
  - NAUSEA [None]
  - VOMITING [None]
